FAERS Safety Report 9869182 (Version 3)
Quarter: 2014Q3

REPORT INFORMATION
  Report Type: Report from Study
  Country: FR (occurrence: FR)
  Receive Date: 20140205
  Receipt Date: 20140815
  Transmission Date: 20150326
  Serious: Yes (Hospitalization)
  Sender: FDA-Public Use
  Company Number: FR-BRISTOL-MYERS SQUIBB COMPANY-19410331

PATIENT
  Age: 55 Year
  Sex: Female
  Weight: 103 kg

DRUGS (17)
  1. KARDEGIC [Concomitant]
     Active Substance: ASPIRIN LYSINE
  2. LOXEN LP [Concomitant]
     Active Substance: NICARDIPINE
  3. PERINDOPRIL [Concomitant]
     Active Substance: PERINDOPRIL
  4. ROVAMYCINE [Concomitant]
     Active Substance: SPIRAMYCIN
  5. ATORVASTATIN [Concomitant]
     Active Substance: ATORVASTATIN
  6. IPILIMUMAB [Suspect]
     Active Substance: IPILIMUMAB
  7. SOLUPRED [Concomitant]
     Active Substance: PREDNISOLONE
  8. PLACEBO [Suspect]
     Active Substance: UNSPECIFIED INGREDIENT
     Indication: METASTATIC MALIGNANT MELANOMA
  9. EUPRESSYL [Concomitant]
     Active Substance: URAPIDIL
  10. ROCEPHINE [Concomitant]
     Active Substance: CEFTRIAXONE SODIUM
  11. SODIUM CHLORIDE. [Concomitant]
     Active Substance: SODIUM CHLORIDE
  12. TRIFLUCAN [Concomitant]
     Active Substance: FLUCONAZOLE
  13. DACARBAZINE. [Suspect]
     Active Substance: DACARBAZINE
     Indication: METASTATIC MALIGNANT MELANOMA
     Route: 042
     Dates: start: 20130322, end: 20130708
  14. GLICLAZIDE [Concomitant]
     Active Substance: GLICLAZIDE
  15. COAPROVEL [Concomitant]
     Active Substance: HYDROCHLOROTHIAZIDE\IRBESARTAN
  16. JANUVIA [Concomitant]
     Active Substance: SITAGLIPTIN PHOSPHATE
  17. AUGMENTIN [Concomitant]
     Active Substance: AMOXICILLIN\CLAVULANATE POTASSIUM

REACTIONS (1)
  - Infection [Recovered/Resolved]

NARRATIVE: CASE EVENT DATE: 20130914
